FAERS Safety Report 4900877-7 (Version None)
Quarter: 2006Q1

REPORT INFORMATION
  Report Type: 
  Country: None (occurrence: None)
  Receive Date: 20060201
  Receipt Date: 20060117
  Transmission Date: 20060701
  Serious: Yes (Life-Threatening)
  Sender: FDA-Public Use
  Company Number: 208577

PATIENT
  Age: 57 Year
  Sex: Male

DRUGS (4)
  1. TENECTEPLASE                               (TENECTEPLASE) [Suspect]
     Indication: ACUTE MYOCARDIAL INFARCTION
     Dosage: 35 MG, SINGLE, INTRAVENOUS
     Route: 042
     Dates: start: 20040730, end: 20040730
  2. HEPARIN [Concomitant]
  3. METOPROLOL TARTRATE [Concomitant]
  4. ASPIRIN [Concomitant]

REACTIONS (2)
  - CARDIAC ARREST [None]
  - VENTRICULAR FIBRILLATION [None]
